FAERS Safety Report 6959227-7 (Version None)
Quarter: 2010Q3

REPORT INFORMATION
  Report Type: 
  Country: None (occurrence: None)
  Receive Date: 20100831
  Receipt Date: 20100819
  Transmission Date: 20110219
  Serious: Yes (Other)
  Sender: FDA-Public Use
  Company Number: AR-PFIZER INC-2010105060

PATIENT
  Age: 51 Year
  Sex: Female
  Weight: 55 kg

DRUGS (2)
  1. LYRICA [Suspect]
     Indication: NEURALGIA
     Dosage: 150 MG, 2X/DAY
     Route: 048
     Dates: start: 20100601
  2. DICLOFENAC [Concomitant]
     Dosage: UNK
     Route: 048
     Dates: start: 20100601

REACTIONS (4)
  - CONSTIPATION [None]
  - OEDEMA PERIPHERAL [None]
  - PALPITATIONS [None]
  - SOMNOLENCE [None]
